FAERS Safety Report 18098648 (Version 1)
Quarter: 2020Q3

REPORT INFORMATION
  Report Type: Spontaneous
  Country: GB (occurrence: GB)
  Receive Date: 20200731
  Receipt Date: 20200731
  Transmission Date: 20201103
  Serious: Yes (Other)
  Sender: FDA-Public Use
  Company Number: GB-ASTRAZENECA-2020SE92563

PATIENT
  Age: 47 Year
  Sex: Female
  Weight: 81.3 kg

DRUGS (9)
  1. FOSTAIR [Concomitant]
     Active Substance: BECLOMETHASONE\FORMOTEROL
  2. AVAMYS [Concomitant]
     Active Substance: FLUTICASONE FUROATE
  3. AMINOPHYLLINE. [Concomitant]
     Active Substance: AMINOPHYLLINE
  4. MONTELUKAST SODIUM. [Concomitant]
     Active Substance: MONTELUKAST SODIUM
  5. IVERMECTIN. [Concomitant]
     Active Substance: IVERMECTIN
  6. BENRALIZUMAB. [Suspect]
     Active Substance: BENRALIZUMAB
     Indication: ASTHMA LATE ONSET
     Dosage: 30.0MG UNKNOWN
     Route: 058
  7. RANITIDINE. [Concomitant]
     Active Substance: RANITIDINE
  8. SALBUTAMOL [Concomitant]
     Active Substance: ALBUTEROL
  9. CETIRIZINE [Concomitant]
     Active Substance: CETIRIZINE HYDROCHLORIDE

REACTIONS (4)
  - Fatigue [Unknown]
  - Throat irritation [Unknown]
  - Cytokine release syndrome [Recovered/Resolved]
  - Respiratory tract irritation [Unknown]
